FAERS Safety Report 12499803 (Version 2)
Quarter: 2016Q4

REPORT INFORMATION
  Report Type: Report from Study
  Country: BR (occurrence: BR)
  Receive Date: 20160627
  Receipt Date: 20161229
  Transmission Date: 20170207
  Serious: Yes (Other)
  Sender: FDA-Public Use
  Company Number: BR-JNJFOC-20160405614

PATIENT
  Age: 50 Year
  Sex: Female
  Weight: 75 kg

DRUGS (2)
  1. SIMPONI [Suspect]
     Active Substance: GOLIMUMAB
     Indication: RHEUMATOID ARTHRITIS
     Route: 058
     Dates: start: 20141111, end: 20150630
  2. PREDNISONE. [Concomitant]
     Active Substance: PREDNISONE
     Route: 065

REACTIONS (12)
  - Dysstasia [Unknown]
  - Drug hypersensitivity [Unknown]
  - Drug intolerance [Unknown]
  - Arthralgia [Unknown]
  - Infection [Unknown]
  - Blood blister [Not Recovered/Not Resolved]
  - Hypersensitivity [Unknown]
  - Rheumatoid factor increased [Unknown]
  - Movement disorder [Unknown]
  - Drug dose omission [Unknown]
  - Wound necrosis [Unknown]
  - Spinal pain [Unknown]

NARRATIVE: CASE EVENT DATE: 2015
